FAERS Safety Report 17624298 (Version 2)
Quarter: 2020Q4

REPORT INFORMATION
  Report Type: Spontaneous
  Country: JP (occurrence: JP)
  Receive Date: 20200403
  Receipt Date: 20201126
  Transmission Date: 20210113
  Serious: Yes (Life-Threatening, Hospitalization, Other)
  Sender: FDA-Public Use
  Company Number: JP-SAKK-2019SA232647AA

PATIENT

DRUGS (9)
  1. PREDONINE [Concomitant]
     Active Substance: PREDNISOLONE
     Indication: ACUTE LYMPHOCYTIC LEUKAEMIA
     Dosage: DAILY DOSE: 25MG
     Route: 048
     Dates: start: 20190820, end: 20190821
  2. RASURITEK 7.5MG [Suspect]
     Active Substance: RASBURICASE
     Indication: TUMOUR LYSIS SYNDROME
     Dosage: 7.5 MG, QD
     Route: 041
     Dates: start: 20190819, end: 20190820
  3. PRANLUKAST [Concomitant]
     Active Substance: PRANLUKAST
     Indication: PRODUCT USED FOR UNKNOWN INDICATION
     Dosage: 450 MG, QD
     Route: 048
  4. ALLOPURINOL. [Concomitant]
     Active Substance: ALLOPURINOL
     Indication: PRODUCT USED FOR UNKNOWN INDICATION
     Dosage: 300 MG, QD
     Route: 048
  5. PARACETAMOL [Suspect]
     Active Substance: ACETAMINOPHEN
     Indication: ANALGESIC THERAPY
     Dosage: 500 MG, QD
     Route: 042
     Dates: start: 20190820, end: 20190820
  6. OMEPRAZOLE [OMEPRAZOLE SODIUM] [Concomitant]
     Active Substance: OMEPRAZOLE SODIUM
     Indication: ADVERSE DRUG REACTION
     Dosage: DAILY DOSE: 20 MG
     Route: 042
     Dates: start: 20190820, end: 20190825
  7. PENTAZOCINE HYDROCHLORIDE [Suspect]
     Active Substance: PENTAZOCINE HYDROCHLORIDE
     Indication: VENOUS STENT INSERTION
     Dosage: 15 MG, QD
     Route: 042
     Dates: start: 20190819, end: 20190819
  8. CEFDITOREN PIVOXIL. [Concomitant]
     Active Substance: CEFDITOREN PIVOXIL
     Indication: PRODUCT USED FOR UNKNOWN INDICATION
     Dosage: 300 MG, QD
     Route: 048
  9. CARBOCISTEINE [Concomitant]
     Active Substance: CARBOCYSTEINE
     Indication: PRODUCT USED FOR UNKNOWN INDICATION
     Dosage: 750 MG, QD
     Route: 048

REACTIONS (10)
  - Haemoglobinuria [Recovering/Resolving]
  - Oxygen saturation decreased [Recovered/Resolved]
  - Methaemoglobinaemia [Recovered/Resolved]
  - Jaundice [Recovering/Resolving]
  - Renal disorder [Recovering/Resolving]
  - Cyanosis [Recovered/Resolved]
  - Haemolytic anaemia [Recovering/Resolving]
  - Haemoglobin decreased [Recovering/Resolving]
  - Malaise [Recovering/Resolving]
  - Haemolysis [Recovered/Resolved]

NARRATIVE: CASE EVENT DATE: 20190820
